APPROVED DRUG PRODUCT: NITROFURANTOIN
Active Ingredient: NITROFURANTOIN, MACROCRYSTALLINE
Strength: 100MG
Dosage Form/Route: CAPSULE;ORAL
Application: A091095 | Product #003
Applicant: ACTAVIS LABORATORIES FL INC
Approved: Jun 18, 2015 | RLD: No | RS: No | Type: DISCN